FAERS Safety Report 20617398 (Version 2)
Quarter: 2022Q2

REPORT INFORMATION
  Report Type: Report from Study
  Country: PH (occurrence: PH)
  Receive Date: 20220321
  Receipt Date: 20220614
  Transmission Date: 20220721
  Serious: Yes (Hospitalization, Other)
  Sender: FDA-Public Use
  Company Number: PH-NOVARTISPH-NVSC2022PH063854

PATIENT
  Age: 16 Year
  Sex: Male

DRUGS (2)
  1. GLIVEC [Suspect]
     Active Substance: IMATINIB MESYLATE
     Indication: Chronic myeloid leukaemia
     Dosage: UNK
     Route: 065
  2. IMATINIB MESYLATE [Suspect]
     Active Substance: IMATINIB MESYLATE
     Indication: Product used for unknown indication
     Dosage: UNK UNK, QD, (4 TABLETS, 2XA DAY)
     Route: 065
     Dates: start: 2015, end: 20220311

REACTIONS (4)
  - Urinary tract infection [Unknown]
  - Myalgia [Not Recovered/Not Resolved]
  - Hyperleukocytosis [Unknown]
  - Splenomegaly [Unknown]
